FAERS Safety Report 19089500 (Version 1)
Quarter: 2021Q2

REPORT INFORMATION
  Report Type: Spontaneous
  Country: US (occurrence: US)
  Receive Date: 20210403
  Receipt Date: 20210403
  Transmission Date: 20210717
  Serious: Yes (Other)
  Sender: FDA-Public Use
  Company Number: US-CIPLA LTD.-2021US02555

PATIENT

DRUGS (24)
  1. ETOPOSIDE. [Suspect]
     Active Substance: ETOPOSIDE
     Dosage: 52 MILLIGRAM, SECOND CYCLE DAY 1
     Route: 042
  2. VINCRISTINE [Suspect]
     Active Substance: VINCRISTINE
     Dosage: 0.3 MILLIGRAM, SIXTH CYCEL DAY 1
     Route: 042
  3. CARBOPLATIN. [Suspect]
     Active Substance: CARBOPLATIN
     Indication: RETINOBLASTOMA
     Dosage: 200.8 MILLIGRAM FIRST CYCLE DAY 1
     Route: 042
  4. CARBOPLATIN. [Suspect]
     Active Substance: CARBOPLATIN
     Dosage: 193.4 MILLIGRAM SECOND CYCLE DAY 1
     Route: 042
  5. ETOPOSIDE. [Suspect]
     Active Substance: ETOPOSIDE
     Indication: RETINOBLASTOMA
     Dosage: 54 MILLIGRAM, FIRST CYCLE DAY 1
     Route: 042
  6. ETOPOSIDE. [Suspect]
     Active Substance: ETOPOSIDE
     Dosage: 56.5 MILLIGRAM, SIXTH CYCLE DAY 1
     Route: 042
  7. VINCRISTINE [Suspect]
     Active Substance: VINCRISTINE
     Dosage: 0.3 MILLIGRAM, FOURTH CYCEL DAY 1
     Route: 042
  8. ETOPOSIDE. [Suspect]
     Active Substance: ETOPOSIDE
     Dosage: 54 MILLIGRAM, FIRST CYCLE DAY 2
     Route: 042
  9. ETOPOSIDE. [Suspect]
     Active Substance: ETOPOSIDE
     Dosage: 52 MILLIGRAM, SECOND CYCLE DAY 2
     Route: 042
  10. ETOPOSIDE. [Suspect]
     Active Substance: ETOPOSIDE
     Dosage: 57 MILLIGRAM, FOURTH CYCLE DAY 2
     Route: 042
  11. ETOPOSIDE. [Suspect]
     Active Substance: ETOPOSIDE
     Dosage: 55 MILLIGRAM, FIFTH CYCLE DAY 1
     Route: 042
  12. CARBOPLATIN. [Suspect]
     Active Substance: CARBOPLATIN
     Dosage: 210.2 MILLIGRAM, SIXTH CYCLE DAY 1
     Route: 042
  13. ETOPOSIDE. [Suspect]
     Active Substance: ETOPOSIDE
     Dosage: 54 MILLIGRAM, THIRD CYCLE DAY 1
     Route: 042
  14. ETOPOSIDE. [Suspect]
     Active Substance: ETOPOSIDE
     Dosage: 54 MILLIGRAM, THIRD CYCLE DAY 2
     Route: 042
  15. VINCRISTINE [Suspect]
     Active Substance: VINCRISTINE
     Dosage: 0.3 MILLIGRAM, SECOND CYCEL DAY 1
     Route: 042
  16. VINCRISTINE [Suspect]
     Active Substance: VINCRISTINE
     Dosage: 0.3 MILLIGRAM, THIRD CYCEL DAY 1
     Route: 042
  17. VINCRISTINE [Suspect]
     Active Substance: VINCRISTINE
     Dosage: 0.3 MILLIGRAM, FIFTH CYCEL DAY 1
     Route: 042
  18. CARBOPLATIN. [Suspect]
     Active Substance: CARBOPLATIN
     Dosage: 212 MILLIGRAM, FOURTH CYCLE DAY 1
     Route: 042
  19. ETOPOSIDE. [Suspect]
     Active Substance: ETOPOSIDE
     Dosage: 57 MILLIGRAM, FOURTH CYCLE DAY 1
     Route: 042
  20. VINCRISTINE [Suspect]
     Active Substance: VINCRISTINE
     Indication: RETINOBLASTOMA
     Dosage: 0.3 MILLIGRAM, FIRST CYCEL DAY 1
     Route: 042
  21. CARBOPLATIN. [Suspect]
     Active Substance: CARBOPLATIN
     Dosage: 204.6 MILLIGRAM FIFTH CYCLE DAY 1
     Route: 042
  22. ETOPOSIDE. [Suspect]
     Active Substance: ETOPOSIDE
     Dosage: 55 MILLIGRAM, FIFTH CYCLE DAY 2
     Route: 042
  23. CARBOPLATIN. [Suspect]
     Active Substance: CARBOPLATIN
     Dosage: 200.8 MILLIGRAM THIRD CYCLE DAY 1
     Route: 042
  24. ETOPOSIDE. [Suspect]
     Active Substance: ETOPOSIDE
     Dosage: 56.5 MILLIGRAM, SIXTH CYCLE DAY 2
     Route: 042

REACTIONS (4)
  - Febrile neutropenia [Unknown]
  - Cytopenia [Unknown]
  - Neutropenia [Unknown]
  - Toxicity to various agents [Unknown]
